FAERS Safety Report 23680454 (Version 1)
Quarter: 2024Q1

REPORT INFORMATION
  Report Type: Spontaneous
  Country: FR (occurrence: FR)
  Receive Date: 20240328
  Receipt Date: 20240328
  Transmission Date: 20240410
  Serious: Yes (Hospitalization, Other)
  Sender: FDA-Public Use
  Company Number: FR-AFSSAPS-RE2024000254

PATIENT
  Age: 80 Year
  Sex: Male
  Weight: 94 kg

DRUGS (15)
  1. AMOXICILLIN [Suspect]
     Active Substance: AMOXICILLIN
     Indication: Pneumonia bacterial
     Dosage: 3 GRAM, ONCE A DAY  (1 SACHET DE 125 MG MORNING, NON AND NIGHT)
     Route: 048
     Dates: start: 20230901, end: 20230906
  2. AMOXICILLIN [Suspect]
     Active Substance: AMOXICILLIN
     Dosage: 3 GRAM, ONCE A DAY  (1 SACHET DE 125 MG MORNING, NON AND NIGHT)
     Route: 048
     Dates: start: 20230913, end: 20230915
  3. LANSOPRAZOLE [Suspect]
     Active Substance: LANSOPRAZOLE
     Indication: Gastrooesophageal reflux disease
     Dosage: 30 MILLIGRAM, ONCE A DAY
     Route: 048
     Dates: end: 20230908
  4. LANSOPRAZOLE [Suspect]
     Active Substance: LANSOPRAZOLE
     Dosage: 15 MILLIGRAM, ONCE A DAY
     Route: 048
     Dates: start: 20230908
  5. FUROSEMIDE [Suspect]
     Active Substance: FUROSEMIDE
     Indication: Hypertension
     Dosage: 40 MILLIGRAM, ONCE A DAY
     Route: 048
  6. PAROXETINE [Suspect]
     Active Substance: PAROXETINE
     Indication: Depression
     Dosage: 20 MILLIGRAM, ONCE A DAY (1 MG PAR JOUR)
     Route: 048
  7. ROSUVASTATIN [Suspect]
     Active Substance: ROSUVASTATIN
     Indication: Dyslipidaemia
     Dosage: 5 MILLIGRAM, ONCE A DAY
     Route: 048
     Dates: end: 20240302
  8. CLAVULANIC ACID [Suspect]
     Active Substance: CLAVULANIC ACID
     Indication: Pneumonia bacterial
     Dosage: 375 MILLIGRAM, ONCE A DAY (1 SACHET DE 125 MG MORNING, NON AND NIGHT)
     Route: 048
     Dates: start: 20230901, end: 20230906
  9. CLAVULANIC ACID [Suspect]
     Active Substance: CLAVULANIC ACID
     Dosage: 375 MILLIGRAM, ONCE A DAY (1 SACHET DE 125 MG MORNING, NON AND NIGHT)
     Route: 048
     Dates: start: 20230913, end: 20230915
  10. AMOXICILLIN\CLAVULANIC ACID [Suspect]
     Active Substance: AMOXICILLIN\CLAVULANIC ACID
     Indication: Pneumonia bacterial
     Dosage: 3 DOSAGE FORM, ONCE A DAY (1 G/200 MG MORNING, NOON AND NIGHT)
     Route: 042
     Dates: start: 20230909, end: 20230913
  11. ALFUZOSIN HYDROCHLORIDE [Suspect]
     Active Substance: ALFUZOSIN HYDROCHLORIDE
     Indication: Benign prostatic hyperplasia
     Dosage: 10 MILLIGRAM, ONCE A DAY (1 TABLET ONCE A DAY)
     Route: 048
  12. FLUINDIONE [Suspect]
     Active Substance: FLUINDIONE
     Indication: Atrial fibrillation
     Dosage: 15 MILLIGRAM, ONCE A DAY
     Route: 048
  13. POTASSIUM CHLORIDE [Concomitant]
     Active Substance: POTASSIUM CHLORIDE
     Indication: Product used for unknown indication
     Dosage: UNK
     Route: 065
  14. Transipeg [Concomitant]
     Indication: Product used for unknown indication
     Dosage: UNK
     Route: 065
  15. CHOLECALCIFEROL [Concomitant]
     Active Substance: CHOLECALCIFEROL
     Indication: Product used for unknown indication
     Dosage: UNK
     Route: 065

REACTIONS (3)
  - Hepatic cytolysis [Not Recovered/Not Resolved]
  - Cholestasis [Not Recovered/Not Resolved]
  - Blood bilirubin increased [Not Recovered/Not Resolved]

NARRATIVE: CASE EVENT DATE: 20230906
